FAERS Safety Report 5117758-9 (Version None)
Quarter: 2006Q3

REPORT INFORMATION
  Report Type: 
  Country: None (occurrence: None)
  Receive Date: 20060929
  Receipt Date: 20060920
  Transmission Date: 20061208
  Serious: Yes (Death, Hospitalization)
  Sender: FDA-Public Use
  Company Number: FR-GLAXOSMITHKLINE-B0439410A

PATIENT
  Age: 82 Year
  Sex: Female
  Weight: 60 kg

DRUGS (4)
  1. ARIXTRA [Suspect]
     Indication: DEEP VEIN THROMBOSIS
     Dosage: 7.5MG PER DAY
     Route: 058
     Dates: start: 20060807, end: 20060823
  2. TED STOCKINGS [Suspect]
     Indication: DEEP VEIN THROMBOSIS
  3. LOVENOX [Concomitant]
     Indication: DEEP VEIN THROMBOSIS
     Dosage: .9ML SINGLE DOSE
     Route: 058
     Dates: start: 20060806, end: 20060806
  4. INNOHEP [Concomitant]
     Route: 058
     Dates: start: 20060824, end: 20060826

REACTIONS (6)
  - BLISTER [None]
  - COMA [None]
  - DEEP VEIN THROMBOSIS [None]
  - DRUG INEFFECTIVE [None]
  - HAEMORRHAGE INTRACRANIAL [None]
  - HEMIPLEGIA [None]
